FAERS Safety Report 25414025 (Version 3)
Quarter: 2025Q3

REPORT INFORMATION
  Report Type: Spontaneous
  Country: PK (occurrence: PK)
  Receive Date: 20250609
  Receipt Date: 20250717
  Transmission Date: 20251021
  Serious: Yes (Hospitalization, Other)
  Sender: ASTELLAS
  Company Number: PK-ASTELLAS-2025-AER-030880

PATIENT
  Age: 37 Year
  Sex: Female
  Weight: 47 kg

DRUGS (3)
  1. CRESEMBA [Suspect]
     Active Substance: ISAVUCONAZONIUM SULFATE
     Indication: Sinusitis fungal
     Dosage: 2 CAPSULES, ONCE DAILY?FORMULATION: CAPSULE, HARD
     Route: 048
  2. CRESEMBA [Suspect]
     Active Substance: ISAVUCONAZONIUM SULFATE
     Dosage: 2 DOSAGE FORM, QD (2 CAP DAILY AFTER LOADING DOSAGES 2+2+2 AND NEXT DAY 2+2+2)?FORMULATION: CAPSULE,
     Route: 048
     Dates: start: 20241009, end: 20241108
  3. CRESEMBA [Suspect]
     Active Substance: ISAVUCONAZONIUM SULFATE
     Dosage: (100 MG CAPSULE) AT LOADING DOSE OF 2 DOSAGE FORMS, THREE TIMES DAILY (FOR 2 DAYS)?FORMULATION: CAPS
     Route: 048

REACTIONS (5)
  - Gallbladder disorder [Recovered/Resolved]
  - Abdominal pain upper [Recovered/Resolved]
  - Liver function test abnormal [Recovered/Resolved]
  - Liver disorder [Recovered/Resolved]
  - Drug ineffective [Unknown]

NARRATIVE: CASE EVENT DATE: 20241102
